FAERS Safety Report 8455401-1 (Version None)
Quarter: 2012Q2

REPORT INFORMATION
  Report Type: 
  Country: None (occurrence: None)
  Receive Date: 20120621
  Receipt Date: 20120611
  Transmission Date: 20120825
  Serious: Yes (Life-Threatening, Hospitalization)
  Sender: FDA-Public Use
  Company Number: FR-BRISTOL-MYERS SQUIBB COMPANY-16692022

PATIENT
  Age: 60 Year
  Sex: Male

DRUGS (7)
  1. COLCHICINE [Suspect]
     Indication: GOUT
     Dosage: TABS, 2 DF ON 18APR12, 3 DF ON 17APR AND 19APR12, 4 DF ON 20APR12
     Route: 048
     Dates: start: 20120417, end: 20120420
  2. INDAPAMIDE [Concomitant]
  3. GLUCOPHAGE [Suspect]
     Indication: TYPE 2 DIABETES MELLITUS
     Dosage: 2 DF: 1000 MG
     Route: 048
  4. PROSCAR [Concomitant]
  5. NEXIUM [Concomitant]
  6. ASPIRIN [Concomitant]
     Dosage: POWDER FOR ORAL SOLUTION, 160MG
     Route: 048
  7. ATORVASTATIN [Concomitant]

REACTIONS (3)
  - BONE MARROW FAILURE [None]
  - LACTIC ACIDOSIS [None]
  - METABOLIC ENCEPHALOPATHY [None]
